FAERS Safety Report 5423693-9 (Version None)
Quarter: 2007Q3

REPORT INFORMATION
  Report Type: 
  Country: None (occurrence: None)
  Receive Date: 20070823
  Receipt Date: 20070816
  Transmission Date: 20080115
  Serious: Yes (Other)
  Sender: FDA-Public Use
  Company Number: B0484225A

PATIENT
  Age: 44 Year
  Sex: Female

DRUGS (1)
  1. FLIXONASE AQUEOUS NASAL SPRAY [Suspect]
     Indication: SINUS CONGESTION
     Route: 065
     Dates: start: 20070724, end: 20070724

REACTIONS (4)
  - FACE OEDEMA [None]
  - HYPOAESTHESIA [None]
  - SYNCOPE [None]
  - TONGUE OEDEMA [None]
